FAERS Safety Report 22209835 (Version 1)
Quarter: 2023Q2

REPORT INFORMATION
  Report Type: Spontaneous
  Country: US (occurrence: US)
  Receive Date: 20230414
  Receipt Date: 20230414
  Transmission Date: 20230721
  Serious: No
  Sender: FDA-Public Use
  Company Number: US-JNJFOC-20230428965

PATIENT
  Sex: Male

DRUGS (3)
  1. RISPERDAL [Suspect]
     Active Substance: RISPERIDONE
     Indication: Behaviour disorder
     Dosage: 1 MG TWICE A DAY
     Route: 048
     Dates: end: 201011
  2. RISPERDAL [Suspect]
     Active Substance: RISPERIDONE
     Dosage: 0.25 MG 2 TABLET, ORALLY TWICE A DAY.
     Route: 048
  3. ADDERALL [Suspect]
     Active Substance: AMPHETAMINE ASPARTATE\AMPHETAMINE SULFATE\DEXTROAMPHETAMINE SACCHARATE\DEXTROAMPHETAMINE SULFATE
     Indication: Behaviour disorder
     Route: 065
     Dates: end: 201011

REACTIONS (1)
  - Behaviour disorder [Unknown]
